FAERS Safety Report 4269692-4 (Version None)
Quarter: 2004Q1

REPORT INFORMATION
  Report Type: 
  Country: None (occurrence: None)
  Receive Date: 20040112
  Receipt Date: 20031222
  Transmission Date: 20041129
  Serious: Yes (Other)
  Sender: FDA-Public Use
  Company Number: 2004-00006FE

PATIENT

DRUGS (3)
  1. PENTASA [Suspect]
     Indication: COLITIS ULCERATIVE
     Dosage: 3 G ORALLY
     Route: 048
     Dates: start: 20030101, end: 20030813
  2. CORTISONE [Concomitant]
  3. ANTIBIOTICS [Concomitant]

REACTIONS (4)
  - C-REACTIVE PROTEIN INCREASED [None]
  - COLITIS [None]
  - NEPHROGENIC ANAEMIA [None]
  - RENAL FAILURE [None]
